FAERS Safety Report 11103704 (Version 1)
Quarter: 2015Q2

REPORT INFORMATION
  Report Type: Spontaneous
  Country: US (occurrence: None)
  Receive Date: 20150508
  Receipt Date: 20150508
  Transmission Date: 20150821
  Serious: No
  Sender: FDA-Public Use
  Company Number: None

PATIENT
  Age: 40 Month
  Sex: Female
  Weight: 58.06 kg

DRUGS (1)
  1. KETOROLAC [Suspect]
     Active Substance: KETOROLAC\KETOROLAC TROMETHAMINE
     Indication: MIGRAINE
     Dosage: AS NEEDED, INTO THE MUSCLE
     Route: 030

REACTIONS (2)
  - Drug administration error [None]
  - Injection site pain [None]
